FAERS Safety Report 9209034 (Version 1)
Quarter: 2013Q2

REPORT INFORMATION
  Report Type: Spontaneous
  Country: US (occurrence: US)
  Receive Date: 20130404
  Receipt Date: 20130404
  Transmission Date: 20140414
  Serious: No
  Sender: FDA-Public Use
  Company Number: US-009507513-1304USA001700

PATIENT
  Sex: Male

DRUGS (4)
  1. DULERA [Suspect]
     Indication: EMPHYSEMA
     Dosage: 2 INHALATIONS A DAY, QD
     Dates: end: 20130331
  2. SPIRIVA [Concomitant]
     Dosage: UNK
  3. MUCINEX [Concomitant]
     Dosage: UNK
  4. IBUPROFEN [Concomitant]
     Dosage: UNK

REACTIONS (2)
  - Eye irritation [Unknown]
  - Vision blurred [Unknown]
